FAERS Safety Report 11423423 (Version 1)
Quarter: 2015Q3

REPORT INFORMATION
  Report Type: Spontaneous
  Country: US (occurrence: US)
  Receive Date: 20150827
  Receipt Date: 20150827
  Transmission Date: 20151125
  Serious: No
  Sender: FDA-Public Use
  Company Number: US-GE HEALTHCARE MEDICAL DIAGNOSTICS-OSCN-PR-1412S-0183

PATIENT
  Age: 19 Year
  Sex: Male

DRUGS (4)
  1. OMNISCAN [Suspect]
     Active Substance: GADODIAMIDE
     Indication: DIAGNOSTIC PROCEDURE
  2. OMNISCAN [Suspect]
     Active Substance: GADODIAMIDE
     Indication: MIGRAINE
  3. OMNISCAN [Suspect]
     Active Substance: GADODIAMIDE
     Indication: ARACHNOID CYST
  4. OMNISCAN [Suspect]
     Active Substance: GADODIAMIDE
     Indication: HEADACHE
     Route: 042
     Dates: start: 20141219, end: 20141219

REACTIONS (1)
  - Urticaria [Recovered/Resolved]

NARRATIVE: CASE EVENT DATE: 20141219
